FAERS Safety Report 6126707-6 (Version None)
Quarter: 2009Q1

REPORT INFORMATION
  Report Type: 
  Country: None (occurrence: None)
  Receive Date: 20090320
  Receipt Date: 20090312
  Transmission Date: 20090719
  Serious: Yes (Other)
  Sender: FDA-Public Use
  Company Number: PHHY2009CA04863

PATIENT
  Sex: Male

DRUGS (5)
  1. EXJADE [Suspect]
     Indication: THALASSAEMIA BETA
     Dosage: 1250 MG
     Route: 048
     Dates: start: 20090122, end: 20090210
  2. EXJADE [Suspect]
     Indication: IRON OVERLOAD
  3. LASIX [Concomitant]
     Dosage: 20 MG, QD
     Route: 048
  4. NADOLOL [Concomitant]
     Dosage: 50 MG, QD
     Route: 048
  5. INSULIN [Concomitant]

REACTIONS (3)
  - DYSPNOEA [None]
  - FLUID RETENTION [None]
  - PITTING OEDEMA [None]
